FAERS Safety Report 9966547 (Version 4)
Quarter: 2014Q2

REPORT INFORMATION
  Report Type: Report from Study
  Country: US (occurrence: US)
  Receive Date: 20140305
  Receipt Date: 20140617
  Transmission Date: 20141212
  Serious: Yes (Other)
  Sender: FDA-Public Use
  Company Number: US-ABBVIE-13P-163-1118606-00

PATIENT
  Age: 61 Year
  Sex: Female
  Weight: 82.63 kg

DRUGS (26)
  1. HUMIRA [Suspect]
     Indication: PSORIATIC ARTHROPATHY
     Route: 058
     Dates: start: 201304
  2. HUMIRA [Suspect]
     Dates: start: 20140307
  3. METHOTREXATE [Suspect]
     Indication: PSORIATIC ARTHROPATHY
     Dates: start: 201401
  4. EFFEXOR [Concomitant]
     Indication: DEPRESSION
  5. MEDROL [Concomitant]
     Indication: PRODUCT USED FOR UNKNOWN INDICATION
  6. ROBAXIN [Concomitant]
     Indication: PRODUCT USED FOR UNKNOWN INDICATION
  7. NABUMETONE [Concomitant]
     Indication: BREAKTHROUGH PAIN
  8. NABUMETONE [Concomitant]
     Indication: ARTHRALGIA
  9. HYDROCODONE/ACETAMINOPHEN [Concomitant]
     Indication: PRODUCT USED FOR UNKNOWN INDICATION
     Dosage: 10-325
  10. VITAMIN B-12 [Concomitant]
     Indication: PRODUCT USED FOR UNKNOWN INDICATION
  11. CLONAZEPAM [Concomitant]
     Indication: PRODUCT USED FOR UNKNOWN INDICATION
  12. FOLIC ACID [Concomitant]
     Indication: PRODUCT USED FOR UNKNOWN INDICATION
  13. CVS OMEPRAZOLE DR [Concomitant]
     Indication: PRODUCT USED FOR UNKNOWN INDICATION
  14. PRILOSEC [Concomitant]
     Indication: GASTRIC DISORDER
  15. PRILOSEC [Concomitant]
     Indication: PROPHYLAXIS
  16. VITAMIN D3 [Concomitant]
     Indication: PRODUCT USED FOR UNKNOWN INDICATION
  17. FOLIC ACID [Concomitant]
     Indication: PRODUCT USED FOR UNKNOWN INDICATION
  18. TYLENOL ARTHRITIS [Concomitant]
     Indication: ARTHRALGIA
  19. LORTAB [Concomitant]
     Indication: SPINAL COLUMN INJURY
  20. LORTAB [Concomitant]
     Indication: COMPRESSION FRACTURE
  21. OMEPRAZOLE [Concomitant]
     Indication: GASTRIC DISORDER
  22. OMEPRAZOLE [Concomitant]
     Indication: PROPHYLAXIS
  23. TIZANIDINE [Concomitant]
     Indication: MUSCLE SPASMS
  24. ASPIRIN [Concomitant]
     Indication: MUSCLE SPASMS
  25. CLONAZEPAM [Concomitant]
     Indication: ANXIETY
  26. VITAMIN E [Concomitant]
     Indication: PRODUCT USED FOR UNKNOWN INDICATION

REACTIONS (26)
  - Mobility decreased [Unknown]
  - Cerebrovascular accident [Unknown]
  - Sensory loss [Recovered/Resolved]
  - Mobility decreased [Recovered/Resolved]
  - Headache [Recovered/Resolved]
  - Arthralgia [Unknown]
  - Mobility decreased [Recovered/Resolved]
  - Sensory disturbance [Not Recovered/Not Resolved]
  - Seasonal allergy [Unknown]
  - Sneezing [Unknown]
  - Rhinorrhoea [Unknown]
  - Productive cough [Unknown]
  - Constipation [Not Recovered/Not Resolved]
  - Drug ineffective [Not Recovered/Not Resolved]
  - Peripheral swelling [Not Recovered/Not Resolved]
  - Pain in extremity [Not Recovered/Not Resolved]
  - Formication [Not Recovered/Not Resolved]
  - Cerebrovascular accident [Recovered/Resolved]
  - Diplegia [Recovered/Resolved]
  - Monoplegia [Recovered/Resolved]
  - Mobility decreased [Recovered/Resolved]
  - Monoplegia [Recovered/Resolved]
  - Asthenia [Not Recovered/Not Resolved]
  - Sensory disturbance [Not Recovered/Not Resolved]
  - Hypoaesthesia [Not Recovered/Not Resolved]
  - Drug interaction [Not Recovered/Not Resolved]
